FAERS Safety Report 10965591 (Version 2)
Quarter: 2015Q2

REPORT INFORMATION
  Report Type: Spontaneous
  Country: DK (occurrence: DK)
  Receive Date: 20150330
  Receipt Date: 20150408
  Transmission Date: 20150821
  Serious: Yes (Death, Life-Threatening, Hospitalization)
  Sender: FDA-Public Use
  Company Number: DK-TEVA-551225ISR

PATIENT
  Age: 40 Year
  Sex: Female

DRUGS (1)
  1. EPIRUBICIN TEVA [Suspect]
     Active Substance: EPIRUBICIN

REACTIONS (3)
  - Cardiac failure [Unknown]
  - Heart transplant rejection [Fatal]
  - Angiopathy [Fatal]

NARRATIVE: CASE EVENT DATE: 2010
